FAERS Safety Report 15114268 (Version 2)
Quarter: 2018Q3

REPORT INFORMATION
  Report Type: Spontaneous
  Country: FR (occurrence: FR)
  Receive Date: 20180706
  Receipt Date: 20180730
  Transmission Date: 20181010
  Serious: Yes (Other)
  Sender: FDA-Public Use
  Company Number: FR-CELGENEUS-FRA-20180609715

PATIENT
  Sex: Male

DRUGS (2)
  1. AG?221 [Suspect]
     Active Substance: ENASIDENIB
     Indication: PRODUCT USED FOR UNKNOWN INDICATION
     Route: 048
     Dates: start: 20180207
  2. AG?221 [Suspect]
     Active Substance: ENASIDENIB
     Route: 048
     Dates: start: 20180711

REACTIONS (1)
  - Thrombocytopenia [Recovering/Resolving]
